FAERS Safety Report 8886634 (Version 1)
Quarter: 2012Q4

REPORT INFORMATION
  Report Type: 
  Country: MX (occurrence: MX)
  Receive Date: 20121105
  Receipt Date: 20121105
  Transmission Date: 20130627
  Serious: Yes (Hospitalization, Other)
  Sender: FDA-Public Use
  Company Number: PHHY2012MX100032

PATIENT
  Sex: Male

DRUGS (3)
  1. CO-DIOVAN [Suspect]
     Indication: HYPERTENSION
     Dosage: 1 DF,(160 mg vals/ 12.5 mg hydr) daily.
     Dates: start: 201110
  2. ENALAPRIL [Concomitant]
     Indication: HYPERTENSION
     Dosage: 2 DF, daily
  3. VENALOT [Concomitant]
     Indication: THROMBOSIS
     Dosage: 1 DF, daily
     Dates: start: 200910

REACTIONS (2)
  - Thrombosis [Not Recovered/Not Resolved]
  - Fatigue [Not Recovered/Not Resolved]
